FAERS Safety Report 23300551 (Version 1)
Quarter: 2023Q4

REPORT INFORMATION
  Report Type: Spontaneous
  Country: JP (occurrence: JP)
  Receive Date: 20231215
  Receipt Date: 20231215
  Transmission Date: 20240110
  Serious: Yes (Other)
  Sender: FDA-Public Use
  Company Number: JP-SA-SAC20231214000204

PATIENT
  Age: 80 Year
  Sex: Female

DRUGS (1)
  1. OXALIPLATIN [Suspect]
     Active Substance: OXALIPLATIN
     Dosage: UNK UNK, QOW
     Route: 042

REACTIONS (2)
  - Spinal compression fracture [Unknown]
  - Neuropathy peripheral [Unknown]
